FAERS Safety Report 26096125 (Version 3)
Quarter: 2025Q4

REPORT INFORMATION
  Report Type: Spontaneous
  Country: US (occurrence: US)
  Receive Date: 20251127
  Receipt Date: 20251219
  Transmission Date: 20260118
  Serious: Yes (Hospitalization)
  Sender: TEVA
  Company Number: US-TEVA-VS-3395129

PATIENT
  Age: 26 Year
  Sex: Female

DRUGS (3)
  1. METOCLOPRAMIDE [Suspect]
     Active Substance: METOCLOPRAMIDE
     Indication: Nausea
     Route: 065
  2. MIRTAZAPINE [Suspect]
     Active Substance: MIRTAZAPINE
     Indication: Nausea
     Dosage: DISINTEGRATING TABLET
     Route: 048
  3. ONDANSETRON [Suspect]
     Active Substance: ONDANSETRON
     Indication: Nausea
     Dosage: DISINTEGRATING TABLET
     Route: 048

REACTIONS (4)
  - Drug ineffective [Unknown]
  - Sedation [Unknown]
  - Maternal exposure during pregnancy [Unknown]
  - Off label use [Unknown]
